FAERS Safety Report 17418715 (Version 2)
Quarter: 2020Q1

REPORT INFORMATION
  Report Type: Report from Study
  Country: GB (occurrence: GB)
  Receive Date: 20200214
  Receipt Date: 20200323
  Transmission Date: 20200409
  Serious: Yes (Hospitalization)
  Sender: FDA-Public Use
  Company Number: GB-BRISTOL-MYERS SQUIBB COMPANY-BMS-2020-009517

PATIENT
  Age: 59 Year
  Sex: Male
  Weight: 71.6 kg

DRUGS (4)
  1. TEMOZOLOMIDE. [Suspect]
     Active Substance: TEMOZOLOMIDE
     Indication: GLIOBLASTOMA
     Dosage: 300 MILLIGRAM DAILY FOR 5 DAYS IN 6X28 DAY CYCLES
     Route: 048
     Dates: start: 20191018, end: 20191018
  2. TEMOZOLOMIDE. [Suspect]
     Active Substance: TEMOZOLOMIDE
     Indication: PRODUCT USED FOR UNKNOWN INDICATION
     Dosage: 395 MILLIGRAM DAILY FOR 5 DAYS IN 6X28 DAY CYCLES
     Route: 048
     Dates: start: 20200114, end: 20200114
  3. IPILIMUMAB [Suspect]
     Active Substance: IPILIMUMAB
     Indication: PRODUCT USED FOR UNKNOWN INDICATION
     Dosage: 270 MILLIGRAM, Q3WK FOR 4 DOSES
     Route: 042
     Dates: start: 20191211, end: 20191211
  4. IPILIMUMAB [Suspect]
     Active Substance: IPILIMUMAB
     Indication: GLIOBLASTOMA
     Dosage: 250 MILLIGRAM, Q3WK FOR 4 DOSES
     Route: 042
     Dates: start: 20190927, end: 20190927

REACTIONS (1)
  - Presyncope [Recovering/Resolving]

NARRATIVE: CASE EVENT DATE: 20200102
